FAERS Safety Report 17979358 (Version 1)
Quarter: 2020Q3

REPORT INFORMATION
  Report Type: Spontaneous
  Country: CN (occurrence: CN)
  Receive Date: 20200703
  Receipt Date: 20200703
  Transmission Date: 20201103
  Serious: Yes (Other)
  Sender: FDA-Public Use
  Company Number: CN-ASTRAZENECA-2020SE83432

PATIENT
  Age: 62 Year
  Sex: Male
  Weight: 71.7 kg

DRUGS (1)
  1. BRILINTA [Suspect]
     Active Substance: TICAGRELOR
     Indication: PRODUCT USED FOR UNKNOWN INDICATION
     Dosage: 180.0MG UNKNOWN
     Route: 048
     Dates: start: 20200517, end: 20200524

REACTIONS (2)
  - Chest discomfort [Recovering/Resolving]
  - Asphyxia [Recovered/Resolved]

NARRATIVE: CASE EVENT DATE: 20200517
